FAERS Safety Report 9445962 (Version 1)
Quarter: 2013Q3

REPORT INFORMATION
  Report Type: Spontaneous
  Country: US (occurrence: US)
  Receive Date: 20130807
  Receipt Date: 20130807
  Transmission Date: 20140515
  Serious: No
  Sender: FDA-Public Use
  Company Number: US-009507513-1307USA006662

PATIENT
  Sex: Male

DRUGS (1)
  1. TICE BCG LIVE [Suspect]
     Indication: BLADDER CANCER
     Dosage: 1 VIAL / 50 ML
     Route: 043
     Dates: start: 20130705

REACTIONS (2)
  - Penile pain [Not Recovered/Not Resolved]
  - Pollakiuria [Not Recovered/Not Resolved]
